FAERS Safety Report 6173854-9 (Version None)
Quarter: 2009Q2

REPORT INFORMATION
  Report Type: 
  Country: None (occurrence: None)
  Receive Date: 20090429
  Receipt Date: 20090429
  Transmission Date: 20091009
  Serious: No
  Sender: FDA-Public Use
  Company Number: None

PATIENT
  Age: 57 Year
  Sex: Female
  Weight: 72.1219 kg

DRUGS (1)
  1. COLESTID [Suspect]
     Indication: HYPERLIPIDAEMIA
     Dosage: 1GM BID PO
     Route: 048
     Dates: start: 20081219

REACTIONS (2)
  - MUSCULAR WEAKNESS [None]
  - MYALGIA [None]
